FAERS Safety Report 8503329-0 (Version None)
Quarter: 2012Q2

REPORT INFORMATION
  Report Type: 
  Country: None (occurrence: None)
  Receive Date: 20120405
  Receipt Date: 20100716
  Transmission Date: 20120825
  Serious: Yes (Hospitalization)
  Sender: FDA-Public Use
  Company Number: PHEH2010US03088

PATIENT
  Age: 61 Year
  Sex: Female

DRUGS (8)
  1. HERBAL EXTRACTS NOS (NO INGREDIENTS/SUBSTANCES) [Concomitant]
  2. K-ZYME [Concomitant]
  3. CALCIUM CARBONATE [Concomitant]
  4. RECLAST [Suspect]
     Indication: OSTEOPOROSIS
     Dosage: 5MG, INFUSION
     Dates: start: 20081003
  5. VITAMINS NOS (VITAMINS NOS) [Concomitant]
  6. THYROID HORMONES (NO INGREDIENTS/SUBSTANCES) [Concomitant]
  7. VIOKASE 16 [Concomitant]
  8. VITAMIN D [Concomitant]

REACTIONS (2)
  - ATRIAL FIBRILLATION [None]
  - PALPITATIONS [None]
